FAERS Safety Report 17050427 (Version 1)
Quarter: 2019Q4

REPORT INFORMATION
  Report Type: Spontaneous
  Country: KR (occurrence: KR)
  Receive Date: 20191119
  Receipt Date: 20191119
  Transmission Date: 20200122
  Serious: Yes (Other)
  Sender: FDA-Public Use
  Company Number: KR-SAMSUNG BIOEPIS-SB-2019-34665

PATIENT
  Age: 35 Year
  Sex: Male

DRUGS (1)
  1. INFLIXIMAB [Suspect]
     Active Substance: INFLIXIMAB
     Indication: ANKYLOSING SPONDYLITIS
     Dosage: (3-5 MG/KG BODY WEIGHT) WAS ADMINISTERED INTRAVENOUSLY DURING WEEKS 0, 2, 6, AND 14 AND AT 6 TO 12 W
     Route: 042

REACTIONS (1)
  - Iridocyclitis [Unknown]
